FAERS Safety Report 21892023 (Version 9)
Quarter: 2023Q4

REPORT INFORMATION
  Report Type: Report from Study
  Country: AR (occurrence: None)
  Receive Date: 20230120
  Receipt Date: 20231201
  Transmission Date: 20240110
  Serious: Yes (Hospitalization)
  Sender: FDA-Public Use
  Company Number: AR-ROCHE-3265367

PATIENT
  Age: 63 Year
  Sex: Male
  Weight: 83 kg

DRUGS (16)
  1. RITUXIMAB [Suspect]
     Active Substance: RITUXIMAB
     Indication: B-cell lymphoma
     Route: 041
     Dates: start: 20221012
  2. RITUXIMAB [Suspect]
     Active Substance: RITUXIMAB
     Dosage: START DATE OF MOST RECENT DOSE OF STUDY DRUG PRIOR TO AE/SAE 28/DEC/2022
     Route: 041
  3. GEMCITABINE [Suspect]
     Active Substance: GEMCITABINE
     Indication: B-cell lymphoma
     Dosage: DOSE LAST STUDY DRUG ADMIN PRIOR AE 2070 MG, START DATE OF MOST RECENT DOSE OF STUDY DRUG PRIOR TO S
     Route: 042
     Dates: start: 20221012
  4. OXALIPLATIN [Suspect]
     Active Substance: OXALIPLATIN
     Indication: B-cell lymphoma
     Dosage: ON 28/DEC/2022, THE PATIENT WAS HIS MOST RECENT DOSE OF OXALIPLATIN AT 207 MG PRIOR AE/SAE ONSET.
     Route: 042
  5. ALLOPURINOL [Concomitant]
     Active Substance: ALLOPURINOL
     Indication: Prophylaxis
     Dosage: MEDICATION INDICATION PROPHYLAXIS
     Dates: start: 20221011
  6. CLONAZEPAM [Concomitant]
     Active Substance: CLONAZEPAM
     Dates: start: 20221012
  7. VALSARTAN [Concomitant]
     Active Substance: VALSARTAN
     Indication: Hypertension
     Dates: start: 2012
  8. OMEPRAZOLE [Concomitant]
     Active Substance: OMEPRAZOLE
     Dates: start: 20221012
  9. ONDANSETRON [Concomitant]
     Active Substance: ONDANSETRON
     Dates: start: 20221012
  10. APREPITANT [Concomitant]
     Active Substance: APREPITANT
     Dates: start: 20221012
  11. ENOXAPARIN SODIUM [Concomitant]
     Active Substance: ENOXAPARIN SODIUM
     Dates: start: 20221012
  12. PIPERACILLIN SODIUM\TAZOBACTAM SODIUM [Concomitant]
     Active Substance: PIPERACILLIN SODIUM\TAZOBACTAM SODIUM
  13. PIPERACILLIN SODIUM\TAZOBACTAM SODIUM [Concomitant]
     Active Substance: PIPERACILLIN SODIUM\TAZOBACTAM SODIUM
     Dates: start: 20230118, end: 20230123
  14. FILGRASTIM [Concomitant]
     Active Substance: FILGRASTIM
     Route: 058
     Dates: start: 20230119, end: 20230119
  15. POLATUZUMAB VEDOTIN [Concomitant]
     Active Substance: POLATUZUMAB VEDOTIN
     Indication: Neoplasm malignant
     Dates: start: 20230718, end: 202308
  16. BENDAMUSTINE [Concomitant]
     Active Substance: BENDAMUSTINE
     Indication: Neoplasm malignant
     Dates: start: 20230718, end: 202308

REACTIONS (1)
  - Embolism [Recovering/Resolving]

NARRATIVE: CASE EVENT DATE: 20230112
